FAERS Safety Report 13598997 (Version 3)
Quarter: 2017Q2

REPORT INFORMATION
  Report Type: Report from Study
  Country: CA (occurrence: CA)
  Receive Date: 20170531
  Receipt Date: 20170606
  Transmission Date: 20170830
  Serious: Yes (Other)
  Sender: FDA-Public Use
  Company Number: CA-ALLERGAN-1722157US

PATIENT
  Age: 38 Year
  Sex: Male

DRUGS (1)
  1. ASENAPINE MALEATE UNK [Suspect]
     Active Substance: ASENAPINE MALEATE
     Indication: SCHIZOPHRENIA
     Dosage: 20 (UNITS NOT PROVIDED), UNK
     Route: 048

REACTIONS (7)
  - Blunted affect [Unknown]
  - Social avoidant behaviour [Unknown]
  - Therapeutic response decreased [Unknown]
  - Emotional poverty [Unknown]
  - Delusion [Unknown]
  - Sedation [Unknown]
  - Suicide attempt [Unknown]
